FAERS Safety Report 22299165 (Version 1)
Quarter: 2023Q2

REPORT INFORMATION
  Report Type: Spontaneous
  Country: US (occurrence: None)
  Receive Date: 20230509
  Receipt Date: 20230509
  Transmission Date: 20230721
  Serious: No
  Sender: FDA-Public Use
  Company Number: 2023A104286

PATIENT

DRUGS (4)
  1. SEROQUEL [Suspect]
     Active Substance: QUETIAPINE FUMARATE
     Indication: Insomnia
     Route: 048
     Dates: start: 2008
  2. SEROQUEL [Suspect]
     Active Substance: QUETIAPINE FUMARATE
     Indication: Depression
     Route: 048
     Dates: start: 2008
  3. SEROQUEL [Suspect]
     Active Substance: QUETIAPINE FUMARATE
     Indication: Anxiety
     Route: 048
     Dates: start: 2008
  4. SEROQUEL [Suspect]
     Active Substance: QUETIAPINE FUMARATE
     Indication: Gastrointestinal pain
     Route: 048
     Dates: start: 2008

REACTIONS (11)
  - Inflammatory bowel disease [Unknown]
  - Insomnia [Unknown]
  - Psychotic disorder [Unknown]
  - Intestinal resection [Unknown]
  - Rash pruritic [Unknown]
  - Withdrawal syndrome [Unknown]
  - Urticaria [Unknown]
  - Hyperglycaemia [Unknown]
  - Hypersensitivity [Unknown]
  - Intentional product misuse [Unknown]
  - Off label use [Unknown]
